FAERS Safety Report 10223665 (Version 1)
Quarter: 2014Q2

REPORT INFORMATION
  Report Type: Spontaneous
  Country: IT (occurrence: None)
  Receive Date: 20140605
  Receipt Date: 20140605
  Transmission Date: 20141212
  Serious: Yes (Life-Threatening, Hospitalization)
  Sender: FDA-Public Use
  Company Number: 2014-PEL-000092

PATIENT
  Age: 67 Year
  Sex: Female

DRUGS (9)
  1. SEVOFLURANE PIRAMAL [Suspect]
     Indication: MAINTENANCE OF ANAESTHESIA
  2. BISOPROLOL (BISOPROLOL) [Concomitant]
  3. HYDROCHLOROTHIAZIDE (HYDROCHLOROTHIAZIDE) [Concomitant]
  4. DOXAZOSIN (DOXAZOSIN) [Concomitant]
  5. LORAZEPAM (LORAZEPAM) [Concomitant]
  6. PROPOFOL (PROPOFOL) [Concomitant]
  7. REMIFENTANIL (REMIFENTANIL) [Concomitant]
  8. ROCURONIUM (ROCURONIUM) [Concomitant]
  9. BUPIVACAINE (BUPIVACAINE) INJECTION [Concomitant]

REACTIONS (7)
  - Arteriospasm coronary [None]
  - Hypotension [None]
  - Atrioventricular block complete [None]
  - Pulseless electrical activity [None]
  - Ejection fraction abnormal [None]
  - Mitral valve incompetence [None]
  - Procedural complication [None]
